FAERS Safety Report 4677476-8 (Version None)
Quarter: 2005Q2

REPORT INFORMATION
  Report Type: 
  Country: None (occurrence: None)
  Receive Date: 20050526
  Receipt Date: 20050526
  Transmission Date: 20051028
  Serious: Yes (Disabling)
  Sender: FDA-Public Use
  Company Number: None

PATIENT
  Age: 46 Year
  Sex: Female
  Weight: 73.4827 kg

DRUGS (2)
  1. CYMBALTA [Suspect]
     Indication: DEPRESSION
     Dosage: 60 MG. 1 X DAY
     Dates: start: 20050106
  2. CYMBALTA [Suspect]
     Indication: FIBROMYALGIA
     Dosage: 60 MG. 1 X DAY
     Dates: start: 20050106

REACTIONS (4)
  - PHOTOPSIA [None]
  - RETINAL DETACHMENT [None]
  - RETINAL DISORDER [None]
  - VISION BLURRED [None]
